FAERS Safety Report 9016091 (Version 1)
Quarter: 2013Q1

REPORT INFORMATION
  Report Type: Spontaneous
  Country: NZ (occurrence: NZ)
  Receive Date: 20130116
  Receipt Date: 20130116
  Transmission Date: 20140127
  Serious: Yes (Other)
  Sender: FDA-Public Use
  Company Number: PHHY2013NZ002342

PATIENT
  Age: 76 Year
  Sex: Male

DRUGS (1)
  1. METOPROLOL [Suspect]
     Dosage: UNK UKN, UNK

REACTIONS (2)
  - Angioedema [Unknown]
  - Chest discomfort [Unknown]
